FAERS Safety Report 7427906-3 (Version None)
Quarter: 2011Q2

REPORT INFORMATION
  Report Type: 
  Country: None (occurrence: None)
  Receive Date: 20110418
  Receipt Date: 20110418
  Transmission Date: 20111010
  Serious: No
  Sender: FDA-Public Use
  Company Number: None

PATIENT
  Age: 32 Year
  Sex: Female
  Weight: 68.0396 kg

DRUGS (2)
  1. AMPYRA [Suspect]
     Indication: GAIT DISTURBANCE
     Dosage: 10 MG EVERY 12 HOURS PO
     Route: 048
     Dates: start: 20100423, end: 20110310
  2. AMPYRA [Suspect]
     Indication: MULTIPLE SCLEROSIS
     Dosage: 10 MG EVERY 12 HOURS PO
     Route: 048
     Dates: start: 20100423, end: 20110310

REACTIONS (12)
  - OROPHARYNGEAL PAIN [None]
  - DIARRHOEA [None]
  - SPEECH DISORDER [None]
  - NAUSEA [None]
  - SINUSITIS [None]
  - ROSACEA [None]
  - COUGH [None]
  - FALL [None]
  - NASOPHARYNGITIS [None]
  - PYREXIA [None]
  - INFECTION [None]
  - MOVEMENT DISORDER [None]
